FAERS Safety Report 9349854 (Version 3)
Quarter: 2013Q3

REPORT INFORMATION
  Report Type: Report from Study
  Country: CA (occurrence: CA)
  Receive Date: 20130614
  Receipt Date: 20130709
  Transmission Date: 20140515
  Serious: Yes (Other)
  Sender: FDA-Public Use
  Company Number: CA-ABBOTT-13P-028-1103211-00

PATIENT
  Sex: Female

DRUGS (2)
  1. HUMIRA [Suspect]
     Indication: RHEUMATOID ARTHRITIS
     Route: 058
     Dates: start: 20080725, end: 20130325
  2. HUMIRA [Suspect]
     Route: 058
     Dates: start: 20130703

REACTIONS (2)
  - Dry eye [Recovered/Resolved]
  - Eye infection [Recovered/Resolved]
